FAERS Safety Report 20451925 (Version 1)
Quarter: 2022Q1

REPORT INFORMATION
  Report Type: Spontaneous
  Country: GR (occurrence: GR)
  Receive Date: 20220209
  Receipt Date: 20220209
  Transmission Date: 20220423
  Serious: Yes (Other)
  Sender: FDA-Public Use
  Company Number: GR-MLMSERVICE-20220131-3347542-1

PATIENT
  Age: 27 Year
  Sex: Female

DRUGS (5)
  1. CYCLOPHOSPHAMIDE [Suspect]
     Active Substance: CYCLOPHOSPHAMIDE
     Indication: Primary mediastinal large B-cell lymphoma
     Dosage: CYCLOPHOSPHAMIDE 750 MG/M2 ON DAY 5, DOSES ARE ADJUSTED BY A 20% INCREASE ABOVE THE LAST CYCLE OR BY
     Route: 065
  2. DOXORUBICIN HYDROCHLORIDE [Suspect]
     Active Substance: DOXORUBICIN HYDROCHLORIDE
     Indication: Primary mediastinal large B-cell lymphoma
     Dosage: DOXORUBICIN 10 MG/M2 ON DAYS 1-4 (TOTAL 40 MG/M2). DOSES ARE ADJUSTED BY A 20% INCREASE ABOVE THE LA
     Route: 065
  3. VINCRISTINE [Suspect]
     Active Substance: VINCRISTINE
     Indication: Primary mediastinal large B-cell lymphoma
     Dosage: VINCRISTINE 0.4 MG/M2 ON DAYS 1-4 UNDER R-DA-EPOCH CYCLES
     Route: 065
  4. PREDNISONE [Suspect]
     Active Substance: PREDNISONE
     Indication: Primary mediastinal large B-cell lymphoma
     Dosage: PREDNISONE 60 MG/M2 ON DAYS 1-5
     Route: 065
  5. ETOPOSIDE [Suspect]
     Active Substance: ETOPOSIDE
     Indication: Primary mediastinal large B-cell lymphoma
     Dosage: ETOPOSIDE 50 MG/M2 ON DAYS 1-4 (TOTAL 200 MG/M2), DOSES ARE ADJUSTED BY A 20% INCREASE ABOVE THE LAS
     Route: 065

REACTIONS (4)
  - Toxicity to various agents [Recovered/Resolved]
  - Pericarditis [Unknown]
  - Myelodysplastic syndrome [Recovered/Resolved]
  - Acute myeloid leukaemia [Recovered/Resolved]
